FAERS Safety Report 5712510-5 (Version None)
Quarter: 2008Q2

REPORT INFORMATION
  Report Type: 
  Country: None (occurrence: None)
  Receive Date: 20080418
  Receipt Date: 20080410
  Transmission Date: 20081010
  Serious: Yes (Death)
  Sender: FDA-Public Use
  Company Number: 163-21880-08040846

PATIENT
  Age: 23 Year
  Sex: Male

DRUGS (1)
  1. REVLIMID [Suspect]
     Indication: BRAIN NEOPLASM
     Dosage: 100 MG, 4 IN 1 D, ORAL
     Route: 048
     Dates: start: 20070911, end: 20071001

REACTIONS (1)
  - DEATH [None]
